FAERS Safety Report 10419547 (Version 1)
Quarter: 2014Q3

REPORT INFORMATION
  Report Type: Spontaneous
  Country: US (occurrence: US)
  Receive Date: 20140829
  Receipt Date: 20140829
  Transmission Date: 20150326
  Serious: No
  Sender: FDA-Public Use
  Company Number: US-ELI_LILLY_AND_COMPANY-US201408010155

PATIENT
  Sex: Female

DRUGS (2)
  1. VITAMIN D [Concomitant]
     Active Substance: CHOLECALCIFEROL
  2. FORTEO [Suspect]
     Active Substance: TERIPARATIDE
     Indication: OSTEOPOROSIS
     Dosage: UNK, QD
     Route: 065
     Dates: start: 20140814

REACTIONS (6)
  - Gastrooesophageal reflux disease [Unknown]
  - Chest pain [Recovering/Resolving]
  - Abdominal discomfort [Unknown]
  - Pollakiuria [Unknown]
  - Chest discomfort [Recovering/Resolving]
  - Back pain [Recovering/Resolving]
